FAERS Safety Report 6756514-2 (Version None)
Quarter: 2010Q2

REPORT INFORMATION
  Report Type: 
  Country: None (occurrence: None)
  Receive Date: 20100604
  Receipt Date: 20100526
  Transmission Date: 20101027
  Serious: Yes (Other)
  Sender: FDA-Public Use
  Company Number: B0657442A

PATIENT
  Sex: Female

DRUGS (3)
  1. REQUIP [Suspect]
     Indication: PARKINSON'S DISEASE
     Route: 048
  2. REQUIP XL [Suspect]
     Indication: PARKINSON'S DISEASE
     Route: 048
     Dates: start: 20090201, end: 20091001
  3. RASAGILINE MESILATE [Concomitant]
     Route: 065

REACTIONS (6)
  - CELLULITIS [None]
  - INFECTION [None]
  - OEDEMA PERIPHERAL [None]
  - PARKINSON'S DISEASE [None]
  - SCAR [None]
  - SKIN ULCER [None]
